FAERS Safety Report 15460899 (Version 3)
Quarter: 2018Q4

REPORT INFORMATION
  Report Type: Spontaneous
  Country: JP (occurrence: JP)
  Receive Date: 20181003
  Receipt Date: 20181221
  Transmission Date: 20190204
  Serious: Yes (Hospitalization)
  Sender: FDA-Public Use
  Company Number: JP-EISAI MEDICAL RESEARCH-EC-2018-043421

PATIENT
  Age: 65 Year
  Sex: Male

DRUGS (1)
  1. LENVIMA [Suspect]
     Active Substance: LENVATINIB
     Indication: HEPATOCELLULAR CARCINOMA
     Route: 048
     Dates: start: 20180723, end: 201809

REACTIONS (6)
  - Hypertension [Recovered/Resolved]
  - Proteinuria [Recovered/Resolved]
  - Nausea [Not Recovered/Not Resolved]
  - Oesophageal varices haemorrhage [Recovered/Resolved]
  - Ammonia increased [Recovered/Resolved]
  - Constipation [Unknown]

NARRATIVE: CASE EVENT DATE: 2018
